FAERS Safety Report 22056252 (Version 1)
Quarter: 2023Q1

REPORT INFORMATION
  Report Type: Spontaneous
  Country: JP (occurrence: JP)
  Receive Date: 20230302
  Receipt Date: 20230302
  Transmission Date: 20230418
  Serious: Yes (Hospitalization)
  Sender: FDA-Public Use
  Company Number: JP-PFIZER INC-PV202300036449

PATIENT
  Sex: Female

DRUGS (1)
  1. ENBREL [Suspect]
     Active Substance: ETANERCEPT
     Indication: Product used for unknown indication
     Dosage: 25 MG 0.5ML ONCE EVERY 2 WEEKS
     Route: 058

REACTIONS (5)
  - Fracture [Unknown]
  - Device audio issue [Unknown]
  - Device failure [Unknown]
  - Poor quality device used [Unknown]
  - Off label use [Unknown]
